FAERS Safety Report 12991139 (Version 1)
Quarter: 2016Q4

REPORT INFORMATION
  Report Type: Report from Study
  Country: CO (occurrence: CO)
  Receive Date: 20161201
  Receipt Date: 20161201
  Transmission Date: 20170207
  Serious: Yes (Hospitalization, Other)
  Sender: FDA-Public Use
  Company Number: CO-BAYER-2016-224645

PATIENT
  Age: 34 Year
  Sex: Female

DRUGS (1)
  1. ADEMPAS [Suspect]
     Active Substance: RIOCIGUAT
     Indication: PULMONARY HYPERTENSION
     Dosage: 2.5 MG, TID
     Route: 048
     Dates: start: 20150310

REACTIONS (5)
  - Syncope [None]
  - Fall [None]
  - Platelet count decreased [None]
  - Upper gastrointestinal haemorrhage [None]
  - Immune system disorder [None]

NARRATIVE: CASE EVENT DATE: 20161112
